FAERS Safety Report 15866970 (Version 1)
Quarter: 2019Q1

REPORT INFORMATION
  Report Type: Report from Study
  Country: DE (occurrence: DE)
  Receive Date: 20190125
  Receipt Date: 20190125
  Transmission Date: 20190417
  Serious: Yes (Hospitalization)
  Sender: FDA-Public Use
  Company Number: DE-ACCORD-103273

PATIENT
  Age: 75 Year
  Sex: Female
  Weight: 66 kg

DRUGS (5)
  1. ERBITUX [Suspect]
     Active Substance: CETUXIMAB
     Indication: HEAD AND NECK CANCER
     Dosage: DAILY DOSE: 250 MG/M2 MILLIGRAM(S)/SQ. METER EVERY WEEKS
     Route: 042
     Dates: start: 20170714
  2. PARACETAMOL [Concomitant]
     Active Substance: ACETAMINOPHEN
     Indication: PREMEDICATION
  3. ERBITUX [Suspect]
     Active Substance: CETUXIMAB
     Indication: PRODUCT USED FOR UNKNOWN INDICATION
     Dosage: DAILY DOSE: 250 MG/M2 MILLIGRAM(S)/SQ. METER EVERY WEEKS
     Route: 042
     Dates: start: 20170714
  4. 5-FLUOROURACIL /00098801/ [Suspect]
     Active Substance: FLUOROURACIL
     Indication: HEAD AND NECK CANCER
     Dosage: DAILY DOSE: 2000 MG/M2 MILLIGRAM(S)/SQ. METER EVERY 3 WEEKS
     Dates: start: 20170629
  5. CARBOPLATIN. [Suspect]
     Active Substance: CARBOPLATIN
     Indication: HEAD AND NECK CANCER
     Dosage: 5 AUC
     Dates: start: 20170629

REACTIONS (3)
  - Enterocolitis [Recovered/Resolved]
  - Alanine aminotransferase increased [Recovered/Resolved]
  - Off label use [Unknown]

NARRATIVE: CASE EVENT DATE: 20170706
